FAERS Safety Report 6528946-9 (Version None)
Quarter: 2009Q4

REPORT INFORMATION
  Report Type: 
  Country: None (occurrence: None)
  Receive Date: 20091224
  Receipt Date: 20091216
  Transmission Date: 20100525
  Serious: Yes (Other)
  Sender: FDA-Public Use
  Company Number: CH-GDP-09407206

PATIENT
  Sex: Female

DRUGS (3)
  1. EPIDUO [Suspect]
     Indication: ACNE
     Dosage: (1 DF QD TOPICAL)
     Route: 061
     Dates: start: 20091123, end: 20091206
  2. TETRALYSAL [Concomitant]
  3. LUBEX [Concomitant]

REACTIONS (5)
  - ERYTHEMA [None]
  - RASH PAPULAR [None]
  - SECRETION DISCHARGE [None]
  - SKIN EROSION [None]
  - SWELLING [None]
